FAERS Safety Report 21335018 (Version 1)
Quarter: 2022Q3

REPORT INFORMATION
  Report Type: Spontaneous
  Country: US (occurrence: None)
  Receive Date: 20220914
  Receipt Date: 20220914
  Transmission Date: 20221026
  Serious: No
  Sender: FDA-Public Use
  Company Number: None

PATIENT
  Sex: Female

DRUGS (1)
  1. CAPECITABINE [Suspect]
     Active Substance: CAPECITABINE
     Dosage: 1000 MG BID ORAL
     Route: 048

REACTIONS (8)
  - Blood electrolytes decreased [None]
  - Abdominal pain [None]
  - Dehydration [None]
  - Diarrhoea [None]
  - Flatulence [None]
  - Nasopharyngitis [None]
  - Pyrexia [None]
  - Weight decreased [None]
